FAERS Safety Report 12897914 (Version 1)
Quarter: 2016Q4

REPORT INFORMATION
  Report Type: Spontaneous
  Country: IT (occurrence: IT)
  Receive Date: 20161031
  Receipt Date: 20161031
  Transmission Date: 20170207
  Serious: Yes (Hospitalization)
  Sender: FDA-Public Use
  Company Number: IT-TEVA-665037ACC

PATIENT
  Age: 33 Year
  Sex: Female
  Weight: 49 kg

DRUGS (5)
  1. PARACETAMOL [Concomitant]
     Active Substance: ACETAMINOPHEN
     Indication: ARTHRALGIA
     Dosage: 3 G
     Route: 048
     Dates: start: 20160421, end: 20160505
  2. DELTACORTENE - 5 MG COMPRESSE BRUNO FARMACEUTICI S.P.A.? [Concomitant]
     Indication: CHEMOTHERAPY
     Dosage: 5 MG
     Route: 048
  3. OMEPRAZOLE. [Concomitant]
     Active Substance: OMEPRAZOLE
     Indication: PROPHYLAXIS AGAINST GASTROINTESTINAL ULCER
     Dosage: 20 MG
     Route: 048
  4. DECAPEPTYL - 3.75 MG/2 ML  IPSEN S.P.A. [Concomitant]
     Indication: BREAST CANCER
     Dosage: 3.75 MG
     Route: 030
     Dates: start: 20151022, end: 20160513
  5. PACLITAXEL TEVA - 6 MG/ML CONCENTRATO PER SOLUZIONE PER INFUSIONE [Suspect]
     Active Substance: PACLITAXEL
     Indication: BREAST CANCER
     Dosage: 120 MG CYCLICAL
     Route: 042
     Dates: start: 20160121, end: 20160421

REACTIONS (2)
  - Polymyositis [Unknown]
  - Transaminases increased [Not Recovered/Not Resolved]

NARRATIVE: CASE EVENT DATE: 20160316
